FAERS Safety Report 15956020 (Version 1)
Quarter: 2019Q1

REPORT INFORMATION
  Report Type: Spontaneous
  Country: OM (occurrence: OM)
  Receive Date: 20190213
  Receipt Date: 20190213
  Transmission Date: 20190417
  Serious: Yes (Other)
  Sender: FDA-Public Use
  Company Number: OM-BAYER-2019-029388

PATIENT
  Sex: Female

DRUGS (1)
  1. ACETYLSALICYLIC ACID (CARDIO) [Suspect]
     Active Substance: ASPIRIN

REACTIONS (1)
  - Angina pectoris [None]
